FAERS Safety Report 25415077 (Version 1)
Quarter: 2025Q2

REPORT INFORMATION
  Report Type: Report from Study
  Country: US (occurrence: US)
  Receive Date: 20250609
  Receipt Date: 20250609
  Transmission Date: 20250716
  Serious: Yes (Other)
  Sender: ALEXION PHARMACEUTICALS
  Company Number: 202506USA003673US

PATIENT

DRUGS (1)
  1. OLAPARIB [Suspect]
     Active Substance: OLAPARIB
     Indication: Breast cancer female
     Dosage: 300 MILLIGRAM, BID

REACTIONS (5)
  - Neuropathy peripheral [Unknown]
  - Hypoaesthesia [Unknown]
  - Paraesthesia [Unknown]
  - Discomfort [Unknown]
  - Pain [Unknown]
